FAERS Safety Report 10702529 (Version 2)
Quarter: 2015Q1

REPORT INFORMATION
  Report Type: Report from Study
  Country: TW (occurrence: TW)
  Receive Date: 20150109
  Receipt Date: 20150113
  Transmission Date: 20150721
  Serious: Yes (Death, Life-Threatening, Hospitalization)
  Sender: FDA-Public Use
  Company Number: TW-009507513-1501TWN000671

PATIENT
  Age: 75 Year
  Sex: Male

DRUGS (2)
  1. PEMBROLIZUMAB. [Suspect]
     Active Substance: PEMBROLIZUMAB
     Indication: METASTATIC MALIGNANT MELANOMA
     Dosage: TOTAL DAILY DOSE ALSO REPORTED AS 135MG, 30 MIN
     Route: 042
     Dates: start: 20141211, end: 20141211
  2. CILASTATIN SODIUM, IMIPENEM (TIENAM) [Suspect]
     Active Substance: CILASTATIN SODIUM\IMIPENEM

REACTIONS (3)
  - Hypotension [Recovering/Resolving]
  - Hepatitis [Fatal]
  - Dyspnoea [Recovering/Resolving]

NARRATIVE: CASE EVENT DATE: 201412
